FAERS Safety Report 10348345 (Version 3)
Quarter: 2014Q3

REPORT INFORMATION
  Report Type: Report from Study
  Country: GB (occurrence: GB)
  Receive Date: 20140729
  Receipt Date: 20140731
  Transmission Date: 20150326
  Serious: Yes (Hospitalization)
  Sender: FDA-Public Use
  Company Number: GB-CELGENEUS-167-AB007-14071574

PATIENT
  Age: 17 Year
  Sex: Female
  Weight: 48.9 kg

DRUGS (8)
  1. ABRAXANE [Suspect]
     Active Substance: PACLITAXEL
     Dosage: 150 MILLIGRAM/SQ. METER
     Route: 041
     Dates: start: 20140718
  2. ONDANSETRON [Concomitant]
     Active Substance: ONDANSETRON
     Indication: VOMITING
     Dosage: 24 MILLIGRAM
     Route: 048
     Dates: start: 20140702
  3. METOCLOPRAMIDE. [Concomitant]
     Active Substance: METOCLOPRAMIDE
     Indication: MALAISE
     Dosage: 30 MILLIGRAM
     Route: 048
     Dates: start: 20140626
  4. LANSOPRAZOLE. [Concomitant]
     Active Substance: LANSOPRAZOLE
     Indication: PROPHYLAXIS
     Dosage: 30 MILLIGRAM
     Route: 048
     Dates: start: 20140626
  5. ABRAXANE [Suspect]
     Active Substance: PACLITAXEL
     Indication: ALVEOLAR RHABDOMYOSARCOMA
     Dosage: 150 MILLIGRAM/SQ. METER
     Route: 041
     Dates: start: 20140703, end: 20140717
  6. SPIRONOLACTONE. [Concomitant]
     Active Substance: SPIRONOLACTONE
     Indication: DIURETIC THERAPY
     Dosage: 100 MILLIGRAM
     Route: 048
     Dates: start: 20140626, end: 20140713
  7. DOCUSATE SODIUM. [Concomitant]
     Active Substance: DOCUSATE SODIUM
     Indication: CONSTIPATION
     Dosage: 300 MILLIGRAM
     Route: 048
  8. SPIRONOLACTONE. [Concomitant]
     Active Substance: SPIRONOLACTONE
     Indication: ASCITES
     Dosage: 100 MILLIGRAM
     Route: 048
     Dates: start: 20140721

REACTIONS (3)
  - Pyrexia [Recovered/Resolved]
  - Hyponatraemia [Not Recovered/Not Resolved]
  - Pyrexia [Recovered/Resolved]

NARRATIVE: CASE EVENT DATE: 20140708
